FAERS Safety Report 5800487-3 (Version None)
Quarter: 2008Q3

REPORT INFORMATION
  Report Type: 
  Country: None (occurrence: None)
  Receive Date: 20080703
  Receipt Date: 20080627
  Transmission Date: 20090109
  Serious: Yes (Death)
  Sender: FDA-Public Use
  Company Number: A0735905A

PATIENT
  Age: 76 Year
  Sex: Female
  Weight: 78 kg

DRUGS (7)
  1. SERETIDE [Suspect]
     Indication: ASTHMA
     Dates: start: 20040101, end: 20080411
  2. EZETIMIBE [Concomitant]
  3. SIMVASTATIN [Concomitant]
     Dates: start: 20050101
  4. ACETYLSALICYLIC ACID SRT [Concomitant]
     Dates: start: 20020101
  5. VALSARTAN [Concomitant]
     Dates: start: 20020101
  6. OMEPRAZOLE [Concomitant]
     Dates: start: 20020101
  7. ALBUTEROL [Concomitant]
     Dates: start: 20020101

REACTIONS (1)
  - DEATH [None]
